FAERS Safety Report 7023795-X (Version None)
Quarter: 2010Q4

REPORT INFORMATION
  Report Type: 
  Country: None (occurrence: None)
  Receive Date: 20101001
  Receipt Date: 20100831
  Transmission Date: 20110411
  Serious: No
  Sender: FDA-Public Use
  Company Number: US-BAYER-201035113NA

PATIENT
  Age: 32 Year
  Sex: Female

DRUGS (2)
  1. MIRENA [Suspect]
     Indication: PRODUCT USED FOR UNKNOWN INDICATION
     Dosage: FREQUENCY: CONTINUOUS
     Route: 015
     Dates: end: 20100831
  2. MIRENA [Suspect]
     Dosage: FREQUENCY: CONTINUOUS
     Route: 015

REACTIONS (1)
  - DEVICE DISLOCATION [None]
